FAERS Safety Report 5816076-0 (Version None)
Quarter: 2008Q3

REPORT INFORMATION
  Report Type: 
  Country: None (occurrence: None)
  Receive Date: 20080716
  Receipt Date: 20080716
  Transmission Date: 20090109
  Serious: Yes (Other)
  Sender: FDA-Public Use
  Company Number: None

PATIENT
  Age: 79 Year
  Sex: Male
  Weight: 81.65 kg

DRUGS (15)
  1. IFOSFAMIDE [Suspect]
     Indication: MALIGNANT FIBROUS HISTIOCYTOMA
     Dosage: 2500 MG/M2 = 5025MG DAY 1 OVER 24HRS IV DRIP
     Route: 041
     Dates: start: 20070828, end: 20070828
  2. DOXORUBICIN HCL [Concomitant]
  3. MESNA [Concomitant]
  4. DEXAMETHASONE [Concomitant]
  5. LORAZEPAM [Concomitant]
  6. CLONAZEPAM [Concomitant]
  7. LEVOTHYROXINE SODIUM [Concomitant]
  8. DOCUSATE [Concomitant]
  9. FERROUS GLUCONATE [Concomitant]
  10. MULTI-VITAMIN [Concomitant]
  11. SIMVASTATIN [Concomitant]
  12. TAMSULOSIN HCL [Concomitant]
  13. ESOMEPRAZOLE [Concomitant]
  14. ISRAPIDINE [Concomitant]
  15. PROCHLOROPERAZINE [Concomitant]

REACTIONS (4)
  - ATAXIA [None]
  - BALANCE DISORDER [None]
  - CONFUSIONAL STATE [None]
  - URINARY INCONTINENCE [None]
